FAERS Safety Report 19043109 (Version 1)
Quarter: 2021Q1

REPORT INFORMATION
  Report Type: Spontaneous
  Country: US (occurrence: US)
  Receive Date: 20210323
  Receipt Date: 20210323
  Transmission Date: 20210420
  Serious: Yes (Other)
  Sender: FDA-Public Use
  Company Number: US-BAYER-2021-105202

PATIENT
  Age: 63 Year
  Sex: Female
  Weight: 63.49 kg

DRUGS (4)
  1. MILTEFOSINE [Concomitant]
     Active Substance: MILTEFOSINE
     Indication: CUTANEOUS LEISHMANIASIS
  2. ANTIMONY [Concomitant]
     Active Substance: ANTIMONY
     Indication: CUTANEOUS LEISHMANIASIS
  3. AMBISOME [Concomitant]
     Active Substance: AMPHOTERICIN B
     Indication: CUTANEOUS LEISHMANIASIS
  4. ACETYLSALICYLIC ACID [Suspect]
     Active Substance: ASPIRIN
     Indication: OROPHARYNGEAL PAIN

REACTIONS (2)
  - Hepatitis [None]
  - Incorrect dose administered [None]
